FAERS Safety Report 24841120 (Version 3)
Quarter: 2025Q1

REPORT INFORMATION
  Report Type: Spontaneous
  Country: IT (occurrence: IT)
  Receive Date: 20250114
  Receipt Date: 20250224
  Transmission Date: 20250409
  Serious: Yes (Hospitalization, Other)
  Sender: ALEXION PHARMACEUTICALS
  Company Number: IT-ASTRAZENECA-202501GLO009530IT

PATIENT
  Age: 68 Year

DRUGS (4)
  1. QUETIAPINE FUMARATE [Suspect]
     Active Substance: QUETIAPINE FUMARATE
     Indication: Bipolar disorder
     Dosage: QUETIAPINE 50 MG/D
     Route: 065
  2. LITHIUM [Suspect]
     Active Substance: LITHIUM
     Indication: Bipolar disorder
     Dosage: 900 MILLIGRAM, QD
     Route: 065
  3. OLANZAPINE [Suspect]
     Active Substance: OLANZAPINE
     Indication: Bipolar disorder
     Dosage: 5 MG, 1D. PATIENT WAS DISCHARGED RECOMMENDING OLANZAPINE SUSPENSION
     Route: 065
  4. PAROXETINE [Suspect]
     Active Substance: PAROXETINE
     Indication: Bipolar disorder
     Dosage: 20 MILLIGRAM, QD
     Route: 065

REACTIONS (5)
  - Neurotoxicity [Recovering/Resolving]
  - Pneumonia [Recovered/Resolved]
  - Hypernatraemia [Recovering/Resolving]
  - Encephalopathy [Recovering/Resolving]
  - Blood creatinine increased [Recovering/Resolving]
